FAERS Safety Report 26020454 (Version 1)
Quarter: 2025Q4

REPORT INFORMATION
  Report Type: Other
  Country: EU (occurrence: EU)
  Receive Date: 20251110
  Receipt Date: 20251110
  Transmission Date: 20260118
  Serious: Yes (Hospitalization, Other)
  Sender: DUCHESNAY
  Company Number: None

PATIENT

DRUGS (1)
  1. DOXYLAMINE SUCCINATE\PYRIDOXINE HYDROCHLORIDE [Suspect]
     Active Substance: DOXYLAMINE SUCCINATE\PYRIDOXINE HYDROCHLORIDE
     Indication: Morning sickness
     Dosage: 1 DOSAGE FORM PER 0.33 DAY
     Route: 048
     Dates: start: 20250925

REACTIONS (2)
  - Pulmonary embolism [Recovered/Resolved]
  - Dyspnoea [Unknown]

NARRATIVE: CASE EVENT DATE: 20251001
